FAERS Safety Report 8577844 (Version 3)
Quarter: 2013Q1

REPORT INFORMATION
  Report Type: Report from Study
  Country: JP (occurrence: JP)
  Receive Date: 20120524
  Receipt Date: 20130204
  Transmission Date: 20140127
  Serious: Yes (Hospitalization, Other)
  Sender: FDA-Public Use
  Company Number: JP-VERTEX PHARMACEUTICALS INC.-AE-2012-007340

PATIENT
  Age: 67 Year
  Sex: Male

DRUGS (16)
  1. VX-950 (TELAPREVIR) [Suspect]
     Indication: CHRONIC HEPATITIS C
     Dosage: 2250 MG, QD
     Route: 048
     Dates: start: 20120404, end: 20120514
  2. PEGINTRON [Suspect]
     Indication: CHRONIC HEPATITIS C
     Dosage: 80 ?G, QW
     Route: 058
     Dates: start: 20120403, end: 20120515
  3. PEGINTRON [Suspect]
     Dosage: 0.75 ?G/KG,QW
     Route: 058
     Dates: start: 20120516
  4. REBETOL [Suspect]
     Indication: CHRONIC HEPATITIS C
     Dosage: 600 MG, QD
     Route: 048
     Dates: start: 20120403, end: 20120416
  5. REBETOL [Suspect]
     Dosage: 400 MG, QD
     Route: 048
     Dates: start: 20120417, end: 20120425
  6. REBETOL [Suspect]
     Dosage: 200 MG, QD
     Route: 048
     Dates: start: 20120426
  7. MUCOSTA [Concomitant]
     Dosage: 300 MG, QD
     Route: 048
     Dates: start: 20120404
  8. LENDORMIN D [Concomitant]
     Dosage: 0.25 MG, QD
     Route: 048
     Dates: start: 20120404
  9. TAKEPRON [Concomitant]
     Dosage: 15 MG, QD
     Route: 048
     Dates: start: 20120404
  10. MARZULENE-S [Concomitant]
     Dosage: 0.5 MG, QD
     Route: 048
     Dates: start: 20120404
  11. JANUVIA [Concomitant]
     Dosage: 50 MG, QD
     Route: 048
     Dates: start: 20120404
  12. AMLODIN OD [Concomitant]
     Dosage: 5 MG, QD
     Route: 048
     Dates: start: 20120404
  13. LOXONIN [Concomitant]
     Dosage: 180 MG, QD
     Route: 048
     Dates: start: 20120404
  14. MEYLON [Concomitant]
     Dosage: 20 ML, QD
     Route: 042
     Dates: start: 20120521, end: 20120521
  15. PHYSIO CURA [Concomitant]
     Dosage: 500 ML, QD
     Route: 042
  16. LACTEC G [Concomitant]
     Dosage: 500 ML, QD
     Route: 042

REACTIONS (4)
  - Renal impairment [Recovered/Resolved]
  - Dizziness [Recovered/Resolved]
  - Malaise [Recovered/Resolved]
  - Vomiting [Unknown]
